FAERS Safety Report 21109865 (Version 1)
Quarter: 2022Q3

REPORT INFORMATION
  Report Type: Spontaneous
  Country: GB (occurrence: None)
  Receive Date: 20220721
  Receipt Date: 20220721
  Transmission Date: 20221027
  Serious: Yes (Other)
  Sender: FDA-Public Use
  Company Number: GB-ROCHE-3138894

PATIENT
  Age: 66 Year
  Sex: Female

DRUGS (3)
  1. CELLCEPT [Suspect]
     Active Substance: MYCOPHENOLATE MOFETIL
     Indication: Chronic kidney disease
     Dosage: 4 X 500 MG TABLETS A DAY
     Route: 065
  2. THYROXINE [Concomitant]
     Active Substance: LEVOTHYROXINE
  3. PREDNISOLONE [Concomitant]
     Active Substance: PREDNISOLONE

REACTIONS (12)
  - Off label use [Unknown]
  - Dry skin [Unknown]
  - Urticaria [Unknown]
  - Neoplasm [Unknown]
  - Hyperkeratosis [Unknown]
  - Vasculitis [Unknown]
  - Basal cell carcinoma [Unknown]
  - Ill-defined disorder [Unknown]
  - Cerebrovascular accident [Unknown]
  - Dry eye [Not Recovered/Not Resolved]
  - Fatigue [Unknown]
  - Weight increased [Unknown]
